FAERS Safety Report 20979296 (Version 2)
Quarter: 2022Q3

REPORT INFORMATION
  Report Type: Spontaneous
  Country: US (occurrence: US)
  Receive Date: 20220620
  Receipt Date: 20220705
  Transmission Date: 20221027
  Serious: Yes (Hospitalization, Other)
  Sender: FDA-Public Use
  Company Number: US-MLMSERVICE-20220602-3590901-1

PATIENT
  Age: 24 Year
  Sex: Male

DRUGS (2)
  1. PREDNISONE [Suspect]
     Active Substance: PREDNISONE
     Indication: Dermatomyositis
     Dosage: 60 MILLIGRAM, ONCE A DAY
     Route: 065
  2. FLUCONAZOLE [Suspect]
     Active Substance: FLUCONAZOLE
     Indication: Disseminated coccidioidomycosis
     Dosage: 800 MILLIGRAM, ONCE A DAY
     Route: 065

REACTIONS (8)
  - Osteolysis [Recovering/Resolving]
  - Submaxillary gland enlargement [Recovering/Resolving]
  - Lymphadenopathy [Recovering/Resolving]
  - Infection reactivation [Recovering/Resolving]
  - Disseminated coccidioidomycosis [Recovered/Resolved]
  - Coccidioidomycosis [Recovering/Resolving]
  - Pulmonary mass [Recovering/Resolving]
  - Dry skin [Unknown]
